FAERS Safety Report 11101643 (Version 1)
Quarter: 2015Q2

REPORT INFORMATION
  Report Type: Spontaneous
  Country: US (occurrence: US)
  Receive Date: 20150508
  Receipt Date: 20150508
  Transmission Date: 20150821
  Serious: Yes (Hospitalization)
  Sender: FDA-Public Use
  Company Number: US-LUNDBECK-DKLU1112121

PATIENT
  Sex: Male

DRUGS (2)
  1. NORTHERA [Suspect]
     Active Substance: DROXIDOPA
     Indication: EXTRAPYRAMIDAL DISORDER
     Route: 048
     Dates: start: 201412
  2. NORTHERA [Suspect]
     Active Substance: DROXIDOPA
     Indication: DYSKINESIA

REACTIONS (1)
  - Surgery [Unknown]
